FAERS Safety Report 9476143 (Version 5)
Quarter: 2014Q3

REPORT INFORMATION
  Report Type: Report from Study
  Country: JP (occurrence: JP)
  Receive Date: 20130826
  Receipt Date: 20140828
  Transmission Date: 20150326
  Serious: Yes (Other)
  Sender: FDA-Public Use
  Company Number: JP-JNJFOC-20130808303

PATIENT
  Age: 59 Year
  Sex: Female

DRUGS (37)
  1. PREDNISOLONE. [Suspect]
     Active Substance: PREDNISOLONE
     Indication: DRUG ERUPTION
     Route: 065
     Dates: start: 20110627, end: 20110703
  2. TRAMCET [Concomitant]
     Active Substance: ACETAMINOPHEN\TRAMADOL
     Indication: BACK PAIN
     Route: 048
     Dates: start: 20111212, end: 20120719
  3. TRAMCET [Concomitant]
     Active Substance: ACETAMINOPHEN\TRAMADOL
     Indication: BACK PAIN
     Route: 048
     Dates: start: 20120720, end: 20130705
  4. URSO [Concomitant]
     Active Substance: URSODIOL
     Indication: HEPATIC FUNCTION ABNORMAL
     Route: 048
     Dates: start: 20110902, end: 20110904
  5. FOSAMAX [Concomitant]
     Active Substance: ALENDRONATE SODIUM
     Indication: SPINAL COMPRESSION FRACTURE
     Route: 048
     Dates: start: 20111024
  6. FOSAMAX [Concomitant]
     Active Substance: ALENDRONATE SODIUM
     Indication: OSTEOPOROSIS PROPHYLAXIS
     Route: 048
     Dates: start: 20111024
  7. NORVIR [Suspect]
     Active Substance: RITONAVIR
     Indication: HIV INFECTION
     Route: 048
     Dates: start: 20110614, end: 20110815
  8. ISENTRESS [Suspect]
     Active Substance: RALTEGRAVIR POTASSIUM
     Indication: HIV INFECTION
     Route: 048
     Dates: start: 20110816
  9. TRAMCET [Concomitant]
     Active Substance: ACETAMINOPHEN\TRAMADOL
     Indication: BACK PAIN
     Route: 048
     Dates: start: 20111024, end: 20111211
  10. TRUVADA [Suspect]
     Active Substance: EMTRICITABINE\TENOFOVIR DISOPROXIL FUMARATE
     Indication: HIV INFECTION
     Route: 048
     Dates: start: 20110614
  11. PREDNISOLONE. [Suspect]
     Active Substance: PREDNISOLONE
     Indication: DRUG ERUPTION
     Route: 065
     Dates: start: 20110624, end: 20110720
  12. LANSOPRAZOLE. [Concomitant]
     Active Substance: LANSOPRAZOLE
     Indication: PROPHYLAXIS
     Route: 048
     Dates: start: 20110624, end: 20140131
  13. PREDNISOLONE. [Suspect]
     Active Substance: PREDNISOLONE
     Indication: DRUG ERUPTION
     Route: 065
     Dates: start: 20110804, end: 20110828
  14. PREDNISOLONE. [Suspect]
     Active Substance: PREDNISOLONE
     Indication: DRUG ERUPTION
     Route: 065
     Dates: start: 20110819, end: 20110831
  15. MEDICON [Concomitant]
     Active Substance: DEXTROMETHORPHAN HYDROBROMIDE
     Indication: COUGH
     Route: 048
     Dates: start: 20110624, end: 20110724
  16. PREDNISOLONE. [Suspect]
     Active Substance: PREDNISOLONE
     Indication: DRUG ERUPTION
     Route: 065
     Dates: start: 20110721, end: 20110817
  17. PREDNISOLONE. [Suspect]
     Active Substance: PREDNISOLONE
     Indication: DRUG ERUPTION
     Route: 065
     Dates: start: 20110818, end: 20110824
  18. TALION [Concomitant]
     Active Substance: BEPOTASTINE
     Indication: DRUG ERUPTION
     Route: 048
     Dates: start: 20110627, end: 20110907
  19. PREDOHAN [Concomitant]
     Active Substance: PREDNISOLONE
     Indication: DRUG ERUPTION
     Route: 048
     Dates: start: 20110728, end: 20110803
  20. LYRICA [Concomitant]
     Active Substance: PREGABALIN
     Indication: BACK PAIN
     Route: 048
     Dates: start: 20121005, end: 20130405
  21. PREDNISOLONE. [Suspect]
     Active Substance: PREDNISOLONE
     Indication: DRUG ERUPTION
     Route: 065
     Dates: start: 20110901, end: 20110904
  22. VALGANCICLOVIR HYDROCHLORIDE [Concomitant]
     Active Substance: VALGANCICLOVIR HYDROCHLORIDE
     Indication: CYTOMEGALOVIRUS TEST POSITIVE
     Route: 048
     Dates: start: 20110818, end: 20110822
  23. SULFAMETHOXAZOLE AND TRIMETHOPRIM [Concomitant]
     Active Substance: SULFAMETHOXAZOLE\TRIMETHOPRIM
     Indication: ANTIFUNGAL PROPHYLAXIS
     Route: 048
     Dates: start: 20110808, end: 20111012
  24. URSO [Concomitant]
     Active Substance: URSODIOL
     Indication: HEPATIC FUNCTION ABNORMAL
     Route: 048
     Dates: start: 20110905, end: 20111103
  25. TRANSAMIN [Concomitant]
     Active Substance: TRANEXAMIC ACID
     Indication: COUGH
     Route: 048
     Dates: start: 20110627, end: 20110814
  26. PREDNISOLONE. [Suspect]
     Active Substance: PREDNISOLONE
     Indication: DRUG ERUPTION
     Route: 065
     Dates: start: 20110704, end: 20110710
  27. VFEND [Suspect]
     Active Substance: VORICONAZOLE
     Indication: ASPERGILLUS TEST
     Route: 048
     Dates: start: 20110816, end: 20120911
  28. LYRICA [Concomitant]
     Active Substance: PREGABALIN
     Indication: NASOPHARYNGITIS
     Route: 048
     Dates: start: 20121005, end: 20130405
  29. PREZISTA [Suspect]
     Active Substance: DARUNAVIR ETHANOLATE
     Indication: HIV INFECTION
     Route: 048
     Dates: start: 20110614, end: 20110815
  30. PREDNISOLONE. [Suspect]
     Active Substance: PREDNISOLONE
     Indication: DRUG ERUPTION
     Route: 065
     Dates: start: 20110905, end: 20110907
  31. PREDNISOLONE. [Suspect]
     Active Substance: PREDNISOLONE
     Indication: DRUG ERUPTION
     Route: 065
     Dates: start: 20110711, end: 20110727
  32. ITRIZOLE [Concomitant]
     Active Substance: ITRACONAZOLE
     Indication: ASPERGILLUS TEST
     Route: 048
     Dates: start: 20110912, end: 20111103
  33. ITRIZOLE [Concomitant]
     Active Substance: ITRACONAZOLE
     Indication: ASPERGILLUS TEST
     Route: 048
     Dates: start: 20110711, end: 20110815
  34. FLORID (MICONAZOLE NITRATE) [Concomitant]
     Indication: ORAL CANDIDIASIS
     Route: 049
     Dates: start: 20110818, end: 20110828
  35. ITRACONAZOLE. [Concomitant]
     Active Substance: ITRACONAZOLE
     Indication: ASPERGILLUS TEST
     Route: 048
     Dates: start: 20120421, end: 20121115
  36. LYRICA [Concomitant]
     Active Substance: PREGABALIN
     Indication: BACK PAIN
     Route: 048
     Dates: start: 20130406, end: 20130510
  37. LYRICA [Concomitant]
     Active Substance: PREGABALIN
     Indication: NASOPHARYNGITIS
     Route: 048
     Dates: start: 20130406, end: 20130510

REACTIONS (8)
  - Drug eruption [Recovered/Resolved]
  - Feeling cold [Recovered/Resolved]
  - Fungal test positive [Not Recovered/Not Resolved]
  - Cytomegalovirus test positive [Recovered/Resolved]
  - Spinal compression fracture [Recovering/Resolving]
  - Pain [Recovered/Resolved]
  - Oral candidiasis [Recovered/Resolved]
  - Hepatic function abnormal [Recovered/Resolved]

NARRATIVE: CASE EVENT DATE: 20110624
